FAERS Safety Report 9456703 (Version 1)
Quarter: 2013Q3

REPORT INFORMATION
  Report Type: Spontaneous
  Country: US (occurrence: US)
  Receive Date: 20130813
  Receipt Date: 20130813
  Transmission Date: 20140515
  Serious: Yes (Other)
  Sender: FDA-Public Use
  Company Number: CHPA2013US012648

PATIENT
  Sex: Female

DRUGS (1)
  1. PERDIEM OVERNIGHT RELIEF PILLS [Suspect]
     Indication: BOWEL MOVEMENT IRREGULARITY
     Dosage: UNK, UNK
     Route: 065

REACTIONS (1)
  - Drug dependence [Unknown]
